FAERS Safety Report 20313118 (Version 3)
Quarter: 2022Q2

REPORT INFORMATION
  Report Type: Spontaneous
  Country: CN (occurrence: CN)
  Receive Date: 20220109
  Receipt Date: 20220415
  Transmission Date: 20220720
  Serious: Yes (Hospitalization, Other)
  Sender: FDA-Public Use
  Company Number: CN-BAYER-2021A276539

PATIENT
  Age: 57 Year
  Sex: Male
  Weight: 82 kg

DRUGS (19)
  1. XARELTO [Interacting]
     Active Substance: RIVAROXABAN
     Indication: Embolism venous
     Dosage: 10 MG, BID
     Route: 048
     Dates: start: 20211112, end: 20211115
  2. XARELTO [Interacting]
     Active Substance: RIVAROXABAN
     Indication: Embolism venous
     Dosage: 10 MG, TID
     Route: 048
     Dates: start: 20211115, end: 20211209
  3. ENOXAPARIN SODIUM [Interacting]
     Active Substance: ENOXAPARIN SODIUM
     Indication: Embolism venous
     Dosage: UNK
     Dates: start: 202111
  4. HERBALS [Suspect]
     Active Substance: HERBALS
     Indication: Embolism venous
     Dosage: UNK, Q4HR
     Dates: start: 20211208
  5. HERBALS [Suspect]
     Active Substance: HERBALS
     Indication: Renal cyst haemorrhage
     Dosage: UNK, Q4HR
     Dates: start: 20211209
  6. LAZERTINIB [Suspect]
     Active Substance: LAZERTINIB
     Indication: Non-small cell lung cancer stage IV
     Dosage: 240, QD
     Route: 048
     Dates: start: 20211013, end: 20211209
  7. AMIVANTAMAB [Suspect]
     Active Substance: AMIVANTAMAB
     Dosage: 1050, EVERY WEEK/ EVERY TWO WEEKS
     Dates: start: 20211013, end: 20211124
  8. MINOCYCLINE HYDROCHLORIDE [Concomitant]
     Active Substance: MINOCYCLINE HYDROCHLORIDE
     Indication: Rash
     Dosage: 100 MG, BID
     Route: 048
     Dates: start: 20211024
  9. MINOCYCLINE HYDROCHLORIDE [Concomitant]
     Active Substance: MINOCYCLINE HYDROCHLORIDE
     Indication: Rash
  10. MINOCYCLINE HYDROCHLORIDE [Concomitant]
     Active Substance: MINOCYCLINE HYDROCHLORIDE
     Indication: Rash
  11. FUSIDIC ACID [Concomitant]
     Active Substance: FUSIDIC ACID
     Indication: Rash
     Dosage: UNK UNK, PRN
     Route: 061
     Dates: start: 20211024
  12. FUSIDIC ACID [Concomitant]
     Active Substance: FUSIDIC ACID
     Indication: Rash
  13. FUSIDIC ACID [Concomitant]
     Active Substance: FUSIDIC ACID
     Indication: Rash
  14. POVIDONE-IODINE [Concomitant]
     Active Substance: POVIDONE-IODINE
     Indication: Rash
     Dosage: UNK UNK, PRN
     Route: 061
     Dates: start: 20211030
  15. POVIDONE-IODINE [Concomitant]
     Active Substance: POVIDONE-IODINE
     Indication: Rash
  16. POVIDONE-IODINE [Concomitant]
     Active Substance: POVIDONE-IODINE
     Indication: Rash
  17. MEGESTROL ACETATE [Concomitant]
     Active Substance: MEGESTROL ACETATE
     Indication: Decreased appetite
     Dosage: 1 DF, QD
     Route: 048
     Dates: start: 20211103
  18. BICYCLOL [Concomitant]
     Active Substance: BICYCLOL
     Indication: Alanine aminotransferase increased
     Dosage: 0.465 G, TID
     Dates: start: 20211207
  19. LECITHIN [Concomitant]
     Active Substance: LECITHIN
     Indication: Alanine aminotransferase increased
     Dosage: 0.465 G, TID
     Dates: start: 20211207

REACTIONS (8)
  - Renal cyst haemorrhage [Recovered/Resolved]
  - Abdominal pain [Recovered/Resolved]
  - Abdominal distension [Recovering/Resolving]
  - Renal haematoma [Unknown]
  - Labelled drug-drug interaction medication error [Unknown]
  - Contraindicated product administered [Unknown]
  - Chromaturia [Unknown]
  - Prescribed underdose [Unknown]

NARRATIVE: CASE EVENT DATE: 20211112
